FAERS Safety Report 17054123 (Version 2)
Quarter: 2019Q4

REPORT INFORMATION
  Report Type: Report from Study
  Country: US (occurrence: US)
  Receive Date: 20191120
  Receipt Date: 20191217
  Transmission Date: 20200122
  Serious: Yes (Other)
  Sender: FDA-Public Use
  Company Number: NVSC2019US020166

PATIENT
  Age: 72 Year
  Sex: Female

DRUGS (2)
  1. GILENYA [Suspect]
     Active Substance: FINGOLIMOD HYDROCHLORIDE
     Indication: RELAPSING MULTIPLE SCLEROSIS
     Dosage: 0.5 MG, QD
     Route: 048
     Dates: start: 20190919
  2. GILENYA [Suspect]
     Active Substance: FINGOLIMOD HYDROCHLORIDE
     Indication: MULTIPLE SCLEROSIS
     Dosage: 0.5 MG, QD
     Route: 048
     Dates: start: 20191130

REACTIONS (12)
  - Oral pain [Unknown]
  - Amnesia [Unknown]
  - Headache [Unknown]
  - Cerebrovascular accident [Unknown]
  - Basal cell carcinoma [Unknown]
  - Confusional state [Unknown]
  - Anxiety [Unknown]
  - Product dose omission [Unknown]
  - Back pain [Unknown]
  - Fatigue [Unknown]
  - Depressed level of consciousness [Unknown]
  - Pain in extremity [Unknown]

NARRATIVE: CASE EVENT DATE: 20190919
